FAERS Safety Report 9050024 (Version 1)
Quarter: 2013Q1

REPORT INFORMATION
  Report Type: Spontaneous
  Country: US (occurrence: US)
  Receive Date: 20130205
  Receipt Date: 20130205
  Transmission Date: 20140127
  Serious: No
  Sender: FDA-Public Use
  Company Number: US-GLAXOSMITHKLINE-A0992386A

PATIENT
  Age: 75 Year
  Sex: Female

DRUGS (1)
  1. ARIXTRA [Suspect]
     Route: 058
     Dates: start: 201208, end: 20120905

REACTIONS (4)
  - Dyskinesia [Recovering/Resolving]
  - Dyskinesia [Unknown]
  - Insomnia [Unknown]
  - Haematoma [Unknown]
